FAERS Safety Report 25173449 (Version 1)
Quarter: 2025Q2

REPORT INFORMATION
  Report Type: Report from Study
  Country: KR (occurrence: KR)
  Receive Date: 20250408
  Receipt Date: 20250408
  Transmission Date: 20250717
  Serious: Yes (Hospitalization)
  Sender: TAKEDA
  Company Number: KR-TAKEDA-2025TUS033437

PATIENT
  Age: 74 Year
  Sex: Male
  Weight: 68 kg

DRUGS (6)
  1. BRIGATINIB [Suspect]
     Active Substance: BRIGATINIB
     Indication: Non-small cell lung cancer
     Dosage: 90 MILLIGRAM, QD
     Dates: start: 20240624, end: 20240630
  2. BRIGATINIB [Suspect]
     Active Substance: BRIGATINIB
     Dosage: 180 MILLIGRAM, QD
     Dates: start: 20240701, end: 20240925
  3. Codaewon forte [Concomitant]
     Indication: Prophylaxis
  4. CODEINE PHOSPHATE [Concomitant]
     Active Substance: CODEINE PHOSPHATE
     Indication: Pain prophylaxis
     Dosage: 60 MILLIGRAM, TID
     Dates: start: 20240624
  5. Eldo [Concomitant]
     Indication: Prophylaxis
     Dosage: 600 MILLIGRAM, TID
     Dates: start: 20240715
  6. Dulackhan [Concomitant]
     Indication: Constipation prophylaxis
     Dosage: 45 MILLILITER, TID
     Dates: start: 20240715

REACTIONS (1)
  - Pleuritic pain [Recovered/Resolved]

NARRATIVE: CASE EVENT DATE: 20240906
